FAERS Safety Report 8793914 (Version 4)
Quarter: 2013Q1

REPORT INFORMATION
  Report Type: Spontaneous
  Country: US (occurrence: US)
  Receive Date: 20120918
  Receipt Date: 20130111
  Transmission Date: 20140127
  Serious: No
  Sender: FDA-Public Use
  Company Number: US-009507513-1208USA005477

PATIENT
  Age: 64 None
  Sex: Male

DRUGS (5)
  1. PEGINTRON [Suspect]
     Indication: HEPATITIS C
     Dosage: REDIPEN
     Dates: start: 20120721, end: 20121217
  2. RIBAVIRIN [Suspect]
     Indication: HEPATITIS C
     Dosage: 1200 MG, QD
     Dates: start: 20120721, end: 2012
  3. RIBAVIRIN [Suspect]
     Dosage: 800 MG, QD
     Dates: start: 2012, end: 2012
  4. RIBAVIRIN [Suspect]
     Dosage: 200 MG, QD
     Dates: start: 2012, end: 20121217
  5. VICTRELIS [Suspect]
     Indication: HEPATITIS C
     Dosage: UNK
     Dates: start: 20120825, end: 20121217

REACTIONS (14)
  - Pain in extremity [Unknown]
  - Rash [Unknown]
  - Pruritus [Unknown]
  - Fatigue [Unknown]
  - Insomnia [Unknown]
  - Anaemia [Unknown]
  - Dyspnoea [Recovered/Resolved]
  - Anxiety [Unknown]
  - Dysgeusia [Unknown]
  - Fatigue [Unknown]
  - Anaemia [Unknown]
  - Dysgeusia [Unknown]
  - Fatigue [Unknown]
  - Haemoglobin decreased [Unknown]
